FAERS Safety Report 10525816 (Version 2)
Quarter: 2015Q4

REPORT INFORMATION
  Report Type: Report from Study
  Country: US (occurrence: US)
  Receive Date: 20141017
  Receipt Date: 20151020
  Transmission Date: 20160304
  Serious: Yes (Death, Hospitalization)
  Sender: FDA-Public Use
  Company Number: PHEH2014US020579

PATIENT
  Sex: Female

DRUGS (4)
  1. DUONEB [Concomitant]
     Active Substance: ALBUTEROL SULFATE\IPRATROPIUM BROMIDE
     Indication: CYSTIC FIBROSIS
     Route: 065
  2. TOBI PODHALER [Suspect]
     Active Substance: TOBRAMYCIN
     Indication: CYSTIC FIBROSIS
     Dosage: 112 MG, BID
     Route: 055
  3. TOBI PODHALER [Suspect]
     Active Substance: TOBRAMYCIN
     Indication: LUNG DISORDER
  4. TOBI PODHALER [Suspect]
     Active Substance: TOBRAMYCIN
     Indication: PSEUDOMONAS INFECTION

REACTIONS (10)
  - Hypotension [Unknown]
  - Pyrexia [Unknown]
  - Cystic fibrosis [Unknown]
  - Death [Fatal]
  - Syncope [Unknown]
  - Dizziness [Unknown]
  - Blood creatinine increased [Unknown]
  - Cellulitis [Unknown]
  - Dehydration [Unknown]
  - Diabetes mellitus [Unknown]
